FAERS Safety Report 13282490 (Version 1)
Quarter: 2017Q1

REPORT INFORMATION
  Report Type: Spontaneous
  Country: SA (occurrence: SA)
  Receive Date: 20170301
  Receipt Date: 20170301
  Transmission Date: 20170428
  Serious: Yes (Hospitalization, Other)
  Sender: FDA-Public Use
  Company Number: SA-ASTRAZENECA-2017SE19690

PATIENT
  Age: 59 Year
  Sex: Female

DRUGS (3)
  1. GLIPTAMET [Concomitant]
     Indication: TYPE 2 DIABETES MELLITUS
  2. AMARYL [Concomitant]
     Active Substance: GLIMEPIRIDE
     Indication: TYPE 2 DIABETES MELLITUS
  3. FORXIGA [Suspect]
     Active Substance: DAPAGLIFLOZIN
     Indication: TYPE 2 DIABETES MELLITUS
     Route: 048
     Dates: start: 20161112, end: 20170220

REACTIONS (1)
  - Diabetic ketoacidosis [Unknown]
